FAERS Safety Report 17557605 (Version 1)
Quarter: 2020Q1

REPORT INFORMATION
  Report Type: Spontaneous
  Country: IL (occurrence: IL)
  Receive Date: 20200318
  Receipt Date: 20200318
  Transmission Date: 20200409
  Serious: Yes (Hospitalization, Other)
  Sender: FDA-Public Use
  Company Number: IL-ALEXION PHARMACEUTICALS INC.-A202003506

PATIENT
  Age: 16 Month
  Sex: Male

DRUGS (1)
  1. SOLIRIS [Suspect]
     Active Substance: ECULIZUMAB
     Indication: ATYPICAL HAEMOLYTIC URAEMIC SYNDROME
     Dosage: 300 MG, Q3W
     Route: 065
     Dates: start: 20190512

REACTIONS (5)
  - Hypertension [Unknown]
  - Nervous system disorder [Unknown]
  - Viral infection [Unknown]
  - Seizure [Unknown]
  - Apallic syndrome [Unknown]

NARRATIVE: CASE EVENT DATE: 202002
